FAERS Safety Report 13550764 (Version 1)
Quarter: 2017Q2

REPORT INFORMATION
  Report Type: Spontaneous
  Country: JP (occurrence: JP)
  Receive Date: 20170516
  Receipt Date: 20170516
  Transmission Date: 20170830
  Serious: Yes (Other)
  Sender: FDA-Public Use
  Company Number: JP-JNJFOC-20161209794

PATIENT
  Sex: Male

DRUGS (1)
  1. ABIRATERONE ACETATE [Suspect]
     Active Substance: ABIRATERONE ACETATE
     Indication: HORMONE-REFRACTORY PROSTATE CANCER
     Route: 048

REACTIONS (6)
  - Hepatic function abnormal [Unknown]
  - Fatigue [Unknown]
  - Hypokalaemia [Unknown]
  - Decreased appetite [Unknown]
  - Oedema [Unknown]
  - Hypertension [Unknown]
